FAERS Safety Report 7617185-6 (Version None)
Quarter: 2011Q3

REPORT INFORMATION
  Report Type: 
  Country: None (occurrence: None)
  Receive Date: 20110718
  Receipt Date: 20110704
  Transmission Date: 20111222
  Serious: Yes (Other)
  Sender: FDA-Public Use
  Company Number: GB-RANBAXY-2011RR-45584

PATIENT
  Age: 46 Year
  Sex: Male

DRUGS (2)
  1. IBUPROFEN [Suspect]
     Indication: PAIN
     Dosage: 400 MG, UNK
     Route: 065
  2. ACETAMINOPHEN [Suspect]
     Indication: PAIN
     Dosage: 1 G, UNK
     Route: 065

REACTIONS (2)
  - DRUG INTERACTION [None]
  - POST PROCEDURAL HAEMORRHAGE [None]
